FAERS Safety Report 5803593-2 (Version None)
Quarter: 2008Q3

REPORT INFORMATION
  Report Type: 
  Country: None (occurrence: None)
  Receive Date: 20080703
  Receipt Date: 20080626
  Transmission Date: 20090109
  Serious: Yes (Death, Hospitalization, Other)
  Sender: FDA-Public Use
  Company Number: 2007-03390

PATIENT
  Age: 69 Year
  Sex: Female
  Weight: 61 kg

DRUGS (2)
  1. VELCADE [Suspect]
     Dosage: 2.00 MG, INTRAVENOUS
     Route: 042
     Dates: start: 20070918, end: 20070928
  2. DECADRON #1 (DEXAMETHASONE SODIUM PHOSPHATE) [Concomitant]

REACTIONS (14)
  - ADRENOCORTICAL INSUFFICIENCY ACUTE [None]
  - ANAPHYLACTIC REACTION [None]
  - ANOREXIA [None]
  - CYSTITIS NONINFECTIVE [None]
  - HISTIOCYTOSIS HAEMATOPHAGIC [None]
  - INFLAMMATION [None]
  - LUNG DISORDER [None]
  - LYMPHOCYTE COUNT DECREASED [None]
  - MENINGEAL DISORDER [None]
  - MENINGITIS [None]
  - NEUROPATHY PERIPHERAL [None]
  - PLATELET COUNT DECREASED [None]
  - PYREXIA [None]
  - UTERINE INFLAMMATION [None]
